FAERS Safety Report 24280626 (Version 1)
Quarter: 2024Q3

REPORT INFORMATION
  Report Type: Spontaneous
  Country: US (occurrence: US)
  Receive Date: 20240904
  Receipt Date: 20240904
  Transmission Date: 20241017
  Serious: Yes (Other)
  Sender: STRIDES
  Company Number: US-STRIDES ARCOLAB LIMITED-2024SP008665

PATIENT
  Age: 9 Year
  Sex: Female

DRUGS (11)
  1. VALGANCICLOVIR HYDROCHLORIDE [Suspect]
     Active Substance: VALGANCICLOVIR HYDROCHLORIDE
     Indication: Antiviral prophylaxis
     Dosage: UNK
     Route: 065
  2. MYCOPHENOLATE MOFETIL [Suspect]
     Active Substance: MYCOPHENOLATE MOFETIL
     Indication: Immune-mediated gastrointestinal disorder
     Dosage: UNK
     Route: 065
  3. MYCOPHENOLATE MOFETIL [Suspect]
     Active Substance: MYCOPHENOLATE MOFETIL
     Indication: Inflammatory bowel disease
  4. TACROLIMUS [Suspect]
     Active Substance: TACROLIMUS
     Indication: Immune system disorder
     Dosage: UNK
     Route: 065
  5. Immunoglobulin [Concomitant]
     Indication: Immune-mediated gastrointestinal disorder
     Dosage: UNK, ONCE A MONTH (MOTHLY THERAPY)
     Route: 042
  6. Immunoglobulin [Concomitant]
     Indication: Inflammatory bowel disease
  7. SULFASALAZINE [Concomitant]
     Active Substance: SULFASALAZINE
     Indication: Immune-mediated gastrointestinal disorder
     Dosage: UNK
     Route: 065
  8. SULFASALAZINE [Concomitant]
     Active Substance: SULFASALAZINE
     Indication: Inflammatory bowel disease
  9. GANCICLOVIR [Concomitant]
     Active Substance: GANCICLOVIR
     Indication: Pneumonia cytomegaloviral
     Dosage: UNK
     Route: 065
  10. MESALAMINE [Concomitant]
     Active Substance: MESALAMINE
     Indication: Immune-mediated gastrointestinal disorder
     Dosage: UNK
     Route: 065
  11. MESALAMINE [Concomitant]
     Active Substance: MESALAMINE
     Indication: Inflammatory bowel disease

REACTIONS (3)
  - Drug ineffective [Unknown]
  - Gastrointestinal disorder [Unknown]
  - Off label use [Unknown]
